FAERS Safety Report 10023964 (Version 1)
Quarter: 2014Q1

REPORT INFORMATION
  Report Type: Spontaneous
  Country: US (occurrence: None)
  Receive Date: 20140304
  Receipt Date: 20140304
  Transmission Date: 20141002
  Serious: Yes (Other)
  Sender: FDA-Public Use
  Company Number: RB-60469-2013

PATIENT
  Sex: Male

DRUGS (1)
  1. SUBOXONE 8 MG [Suspect]
     Indication: DRUG DEPENDENCE
     Dosage: 8 MG TABLET ON TWO SEPARATE OCCASIONS; DATES UNKNOWN. SUBLINGUAL
     Route: 060

REACTIONS (9)
  - Dyspnoea [None]
  - Substance abuse [None]
  - Urticaria [None]
  - Headache [None]
  - Pruritus [None]
  - Hypersensitivity [None]
  - Migraine [None]
  - Localised oedema [None]
  - Erythema [None]
